FAERS Safety Report 15308101 (Version 3)
Quarter: 2019Q1

REPORT INFORMATION
  Report Type: Spontaneous
  Country: US (occurrence: US)
  Receive Date: 20180822
  Receipt Date: 20190211
  Transmission Date: 20190417
  Serious: No
  Sender: FDA-Public Use
  Company Number: US-PFIZER INC-2018336427

PATIENT
  Age: 46 Year
  Sex: Female
  Weight: 91 kg

DRUGS (5)
  1. LYRICA [Suspect]
     Active Substance: PREGABALIN
     Indication: NERVE INJURY
     Dosage: 600 MG, DAILY (3 200 MG CAPSULES A DAY)
     Route: 048
     Dates: start: 2015
  2. LYRICA [Suspect]
     Active Substance: PREGABALIN
     Dosage: 200 MG, 3X/DAY
  3. ZANAFLEX [Concomitant]
     Active Substance: TIZANIDINE HYDROCHLORIDE
     Indication: RESTLESS LEGS SYNDROME
     Dosage: 4 MG, AS NEEDED
     Route: 048
  4. TIZANIDINE. [Concomitant]
     Active Substance: TIZANIDINE
     Dosage: 40 MG, 3X/DAY
  5. DULOXETINE. [Concomitant]
     Active Substance: DULOXETINE
     Dosage: 60 MG, 1X/DAY (1 CAPSULE EVERY MORNING)

REACTIONS (10)
  - Pain in extremity [Unknown]
  - Hypoaesthesia [Recovering/Resolving]
  - Intervertebral disc protrusion [Unknown]
  - Intentional product misuse [Unknown]
  - Nausea [Not Recovered/Not Resolved]
  - Hot flush [Not Recovered/Not Resolved]
  - Arthralgia [Unknown]
  - Diarrhoea [Not Recovered/Not Resolved]
  - Withdrawal syndrome [Not Recovered/Not Resolved]
  - Vertebral foraminal stenosis [Unknown]

NARRATIVE: CASE EVENT DATE: 201806
